FAERS Safety Report 10434082 (Version 2)
Quarter: 2015Q1

REPORT INFORMATION
  Report Type: Spontaneous
  Country: US (occurrence: US)
  Receive Date: 20140905
  Receipt Date: 20150112
  Transmission Date: 20150720
  Serious: Yes (Death, Hospitalization, Other)
  Sender: FDA-Public Use
  Company Number: US-SA-2014SA118705

PATIENT
  Age: 80 Year
  Sex: Female

DRUGS (7)
  1. VERAPAMIL [Concomitant]
     Active Substance: VERAPAMIL HYDROCHLORIDE
     Dosage: STRENGTH: 120 MG ER
     Dates: start: 20030227, end: 20040316
  2. CARDIZEM [Concomitant]
     Active Substance: DILTIAZEM HYDROCHLORIDE
     Dosage: VIA NG TUBE Q6H
  3. VERAPAMIL [Concomitant]
     Active Substance: VERAPAMIL HYDROCHLORIDE
     Dosage: STRENGTH: 240 MG SR
     Dates: start: 20030227, end: 20040414
  4. PLAVIX [Suspect]
     Active Substance: CLOPIDOGREL BISULFATE
     Indication: CEREBROVASCULAR ACCIDENT
     Dosage: STRENGTH: 75 MG
     Route: 048
     Dates: start: 20030227, end: 20041020
  5. ASPIRIN. [Concomitant]
     Active Substance: ASPIRIN
  6. PREVACID [Concomitant]
     Active Substance: LANSOPRAZOLE
     Dosage: VIA NG TUBE Q, DAY
  7. PERIDEX [Concomitant]
     Active Substance: CHLORHEXIDINE GLUCONATE
     Dosage: ORAL RINSE

REACTIONS (5)
  - Haemorrhage intracranial [Unknown]
  - Cerebral haemorrhage [Unknown]
  - Death [Fatal]
  - Gastrointestinal haemorrhage [Unknown]
  - Injury [Unknown]

NARRATIVE: CASE EVENT DATE: 200404
